FAERS Safety Report 22829960 (Version 4)
Quarter: 2023Q4

REPORT INFORMATION
  Report Type: Spontaneous
  Country: US (occurrence: US)
  Receive Date: 20230816
  Receipt Date: 20231110
  Transmission Date: 20240109
  Serious: Yes (Other)
  Sender: FDA-Public Use
  Company Number: US-AURINIA PHARMACEUTICALS INC.-AUR-003684

PATIENT
  Age: 67 Year
  Sex: Female

DRUGS (5)
  1. LUPKYNIS [Suspect]
     Active Substance: VOCLOSPORIN
     Indication: Lupus nephritis
     Dosage: 23.7 MILLIGRAM, BID
     Route: 048
     Dates: start: 20221215
  2. LUPKYNIS [Suspect]
     Active Substance: VOCLOSPORIN
     Dosage: 23.7 MILLIGRAM, BID
     Route: 048
     Dates: start: 20221215
  3. LUPKYNIS [Suspect]
     Active Substance: VOCLOSPORIN
     Dosage: UNK
     Dates: start: 20230801
  4. LUPKYNIS [Suspect]
     Active Substance: VOCLOSPORIN
     Dosage: UNK
     Dates: start: 20230905
  5. MYCOPHENOLIC ACID [Suspect]
     Active Substance: MYCOPHENOLIC ACID
     Indication: Product used for unknown indication

REACTIONS (5)
  - Oesophageal stenosis [Not Recovered/Not Resolved]
  - Dysphagia [Unknown]
  - Abdominal discomfort [Unknown]
  - Product use complaint [Unknown]
  - Product dose omission issue [Unknown]

NARRATIVE: CASE EVENT DATE: 20230801
